FAERS Safety Report 21749235 (Version 1)
Quarter: 2022Q4

REPORT INFORMATION
  Report Type: Spontaneous
  Country: US (occurrence: None)
  Receive Date: 20221217
  Receipt Date: 20221217
  Transmission Date: 20230112
  Serious: Yes (Hospitalization)
  Sender: FDA-Public Use
  Company Number: None

PATIENT
  Sex: Female
  Weight: 76.1 kg

DRUGS (3)
  1. FLUOROURACIL [Suspect]
     Active Substance: FLUOROURACIL
     Dates: end: 20221105
  2. LEUCOVORIN CALCIUM [Suspect]
     Active Substance: LEUCOVORIN CALCIUM
     Dates: end: 20221103
  3. ELOXATIN [Suspect]
     Active Substance: OXALIPLATIN
     Dates: end: 20221103

REACTIONS (3)
  - Diarrhoea [None]
  - Electrocardiogram ST segment abnormal [None]
  - Hypokalaemia [None]

NARRATIVE: CASE EVENT DATE: 20221116
